FAERS Safety Report 6030662-7 (Version None)
Quarter: 2009Q1

REPORT INFORMATION
  Report Type: 
  Country: None (occurrence: None)
  Receive Date: 20090107
  Receipt Date: 20080417
  Transmission Date: 20090719
  Serious: No
  Sender: FDA-Public Use
  Company Number: A0724889A

PATIENT
  Sex: Female

DRUGS (4)
  1. TAGAMET [Suspect]
     Indication: DRUG USE FOR UNKNOWN INDICATION
  2. CYMBALTA [Suspect]
     Indication: DRUG USE FOR UNKNOWN INDICATION
  3. NAPROXIN [Suspect]
     Indication: DRUG USE FOR UNKNOWN INDICATION
  4. LORAZEPAM [Concomitant]
     Indication: DRUG USE FOR UNKNOWN INDICATION

REACTIONS (1)
  - LIBIDO DECREASED [None]
